FAERS Safety Report 5289418-5 (Version None)
Quarter: 2007Q2

REPORT INFORMATION
  Report Type: 
  Country: None (occurrence: None)
  Receive Date: 20070404
  Receipt Date: 20070404
  Transmission Date: 20071010
  Serious: Yes (Other)
  Sender: FDA-Public Use
  Company Number: None

PATIENT
  Sex: Female
  Weight: 59.3 kg

DRUGS (4)
  1. THALIDOMIDE [Suspect]
     Indication: MYELOFIBROSIS
     Dosage: 50 MG PO QD X 28 DAYS
     Route: 048
     Dates: start: 20051025, end: 20060115
  2. PREDNISONE [Suspect]
     Dosage: 7.5 MG PO QD X 28 DAYS
     Route: 048
     Dates: start: 20051025, end: 20060116
  3. CYTOXAN [Suspect]
     Dosage: 2.5 MG PO QD X 28DAYS
     Route: 048
     Dates: start: 20051025, end: 20051115
  4. LEVOTHYROXINE SODIUM [Concomitant]

REACTIONS (1)
  - PLATELET COUNT DECREASED [None]
